FAERS Safety Report 4339944-8 (Version None)
Quarter: 2004Q2

REPORT INFORMATION
  Report Type: 
  Country: None (occurrence: None)
  Receive Date: 20040416
  Receipt Date: 20040407
  Transmission Date: 20050107
  Serious: Yes (Hospitalization)
  Sender: FDA-Public Use
  Company Number: FR-GLAXOSMITHKLINE-B0329186A

PATIENT
  Age: 29 Year
  Sex: Female

DRUGS (3)
  1. SALBUMOL [Suspect]
     Dosage: 1MG PER DAY
     Route: 042
     Dates: start: 20031016, end: 20031021
  2. LOXEN [Suspect]
     Dosage: 5MG PER DAY
     Route: 042
     Dates: start: 20031016, end: 20031021
  3. SERUM GLUCOSE 5 % [Concomitant]
     Dosage: 140ML PER DAY
     Route: 042

REACTIONS (3)
  - DRUG EXPOSURE DURING PREGNANCY [None]
  - INJECTION SITE REACTION [None]
  - PHLEBITIS [None]
